FAERS Safety Report 4694220-9 (Version None)
Quarter: 2005Q2

REPORT INFORMATION
  Report Type: 
  Country: None (occurrence: None)
  Receive Date: 20050616
  Receipt Date: 20050616
  Transmission Date: 20051028
  Serious: Yes (Other)
  Sender: FDA-Public Use
  Company Number: None

PATIENT
  Sex: Male
  Weight: 76.6579 kg

DRUGS (4)
  1. LEXAPRO [Suspect]
     Indication: MAJOR DEPRESSION
     Dosage: 10 MG DAILY
  2. LAMICTAL [Concomitant]
  3. TEGRETOL [Concomitant]
  4. DEPAKOTE [Concomitant]

REACTIONS (2)
  - CONDITION AGGRAVATED [None]
  - CONVULSION [None]
